FAERS Safety Report 14780852 (Version 1)
Quarter: 2020Q3

REPORT INFORMATION
  Report Type: Spontaneous
  Country: GR (occurrence: GR)
  Receive Date: 20180419
  Receipt Date: 20180419
  Transmission Date: 20201105
  Serious: Yes (Other)
  Sender: FDA-Public Use
  Company Number: PHHY2017GR202375

PATIENT
  Age: 21 Year
  Sex: Male
  Weight: 82 kg

DRUGS (6)
  1. COLISTIN [Suspect]
     Active Substance: COLISTIN
     Indication: KLEBSIELLA INFECTION
     Dosage: UNK
     Route: 065
  2. TIGECYCLINE. [Suspect]
     Active Substance: TIGECYCLINE
     Indication: KLEBSIELLA INFECTION
     Dosage: 1 OT, QD
     Route: 065
  3. MEROPENEM. [Suspect]
     Active Substance: MEROPENEM
     Indication: KLEBSIELLA INFECTION
     Dosage: UNK
     Route: 065
  4. AMIKACIN. [Suspect]
     Active Substance: AMIKACIN
     Indication: KLEBSIELLA INFECTION
     Dosage: UNK
     Route: 065
  5. INVANZ [Suspect]
     Active Substance: ERTAPENEM SODIUM
     Indication: KLEBSIELLA INFECTION
     Dosage: UNK
     Route: 065
  6. LEVOFLOXACIN. [Suspect]
     Active Substance: LEVOFLOXACIN
     Indication: KLEBSIELLA INFECTION
     Dosage: UNK
     Route: 065

REACTIONS (2)
  - Drug ineffective for unapproved indication [Unknown]
  - Sepsis [Unknown]
